FAERS Safety Report 11158874 (Version 1)
Quarter: 2015Q2

REPORT INFORMATION
  Report Type: Spontaneous
  Country: US (occurrence: None)
  Receive Date: 20150601
  Receipt Date: 20150601
  Transmission Date: 20150821
  Serious: Yes (Other)
  Sender: FDA-Public Use
  Company Number: None

PATIENT
  Age: 56 Year

DRUGS (3)
  1. FIBER SUPPLEMENT [Concomitant]
  2. HYDROCODONE [Concomitant]
     Active Substance: HYDROCODONE
  3. NEURONTIN [Suspect]
     Active Substance: GABAPENTIN
     Indication: NEUROPATHY PERIPHERAL
     Route: 048
     Dates: start: 20130501, end: 20150501

REACTIONS (9)
  - Nausea [None]
  - Diarrhoea [None]
  - Haematochezia [None]
  - Therapy cessation [None]
  - Abnormal faeces [None]
  - Polyp [None]
  - Colitis [None]
  - Neuropathy peripheral [None]
  - Gastritis [None]

NARRATIVE: CASE EVENT DATE: 20150423
